FAERS Safety Report 16987347 (Version 1)
Quarter: 2019Q4

REPORT INFORMATION
  Report Type: Spontaneous
  Country: NG (occurrence: NG)
  Receive Date: 20191102
  Receipt Date: 20191102
  Transmission Date: 20200122
  Serious: Yes (Death)
  Sender: FDA-Public Use
  Company Number: NG-MICRO LABS LIMITED-ML2019-02970

PATIENT

DRUGS (1)
  1. LAMIVUDINE, NEVIRAPINE AND ZIDOVUDINE [Suspect]
     Active Substance: LAMIVUDINE\NEVIRAPINE\ZIDOVUDINE

REACTIONS (3)
  - Haematuria [Fatal]
  - Dizziness [Fatal]
  - Angioedema [Fatal]
